FAERS Safety Report 7073522-5 (Version None)
Quarter: 2010Q4

REPORT INFORMATION
  Report Type: 
  Country: None (occurrence: None)
  Receive Date: 20101029
  Receipt Date: 20100702
  Transmission Date: 20110411
  Serious: No
  Sender: FDA-Public Use
  Company Number: A0868400A

PATIENT
  Age: 83 Year
  Sex: Male

DRUGS (13)
  1. ADVAIR DISKUS 100/50 [Suspect]
     Indication: ASTHMA
     Dosage: 1PUFF TWICE PER DAY
     Route: 055
     Dates: start: 20100502
  2. PROVENTIL [Concomitant]
  3. ATENOLOL [Concomitant]
  4. DIPYRIDAMOLE [Concomitant]
  5. GUAIFENESIN [Concomitant]
  6. HYDROCHLOROTHIAZIDE [Concomitant]
  7. IPRATROPIUM BROMIDE [Concomitant]
     Route: 055
  8. LISINOPRIL [Concomitant]
  9. RANITIDINE [Concomitant]
  10. FLUNISOLIDE [Concomitant]
  11. LORATADINE [Concomitant]
  12. ALBUTEROL [Concomitant]
  13. OMEPRAZOLE [Concomitant]

REACTIONS (2)
  - EXTRASYSTOLES [None]
  - HEART RATE DECREASED [None]
